FAERS Safety Report 24545824 (Version 1)
Quarter: 2024Q4

REPORT INFORMATION
  Report Type: Report from Study
  Country: DE (occurrence: DE)
  Receive Date: 20241024
  Receipt Date: 20241024
  Transmission Date: 20250114
  Serious: Yes (Other)
  Sender: AMGEN
  Company Number: DE-ROCHE-10000097246

PATIENT
  Age: 68 Year
  Sex: Male
  Weight: 63 kg

DRUGS (3)
  1. PANITUMUMAB [Suspect]
     Active Substance: PANITUMUMAB
     Indication: Neoplasm
     Dosage: ON 03/APR/2024, HE START MOST RECENT DOSE OF CANCER TREATMENT 1 PRIOR TO AE/SAE. DOSE OF LAST CANCER
     Route: 040
     Dates: start: 20240206, end: 20240624
  2. IRINOTECAN [Suspect]
     Active Substance: IRINOTECAN
     Indication: Neoplasm
     Dosage: 03/APR/2024, HE START MOST RECENT DOSE OF CANCER TREATMENT 3 PRIOR TO AE/SAE. DOSE OF LAST CANCER TR
     Route: 040
     Dates: start: 20240206, end: 20240403
  3. FLUOROURACIL [Suspect]
     Active Substance: FLUOROURACIL
     Indication: Neoplasm
     Dosage: ON 03/APR/2024, START MOST RECENT DOSE OF CANCER TREATMENT 4 PRIOR TO AE/SAE. DOSE OF LAST CANCER TR
     Route: 040
     Dates: start: 20240206, end: 20240403

REACTIONS (1)
  - Leukopenia [Recovered/Resolved]

NARRATIVE: CASE EVENT DATE: 20240417
